FAERS Safety Report 8903625 (Version 1)
Quarter: 2012Q4

REPORT INFORMATION
  Report Type: 
  Country: US (occurrence: US)
  Receive Date: 20121112
  Receipt Date: 20121112
  Transmission Date: 20130627
  Serious: No
  Sender: FDA-Public Use
  Company Number: US-PFIZER INC-2012280274

PATIENT
  Age: 63 Year
  Sex: Male
  Weight: 80.27 kg

DRUGS (2)
  1. PHENYTOIN SODIUM [Suspect]
     Indication: SEIZURE
     Dosage: 100 mg, 3x/day
     Dates: start: 2010
  2. ACETYLSALICYLIC ACID [Concomitant]
     Indication: STROKE
     Dosage: UNK daily at night

REACTIONS (1)
  - Anticonvulsant drug level decreased [Not Recovered/Not Resolved]
